FAERS Safety Report 8681584 (Version 4)
Quarter: 2013Q2

REPORT INFORMATION
  Report Type: Report from Study
  Country: CH (occurrence: CH)
  Receive Date: 20120725
  Receipt Date: 20130404
  Transmission Date: 20140414
  Serious: Yes (Death, Hospitalization)
  Sender: FDA-Public Use
  Company Number: PHHO2012CH009461

PATIENT
  Age: 68 Year
  Sex: Male

DRUGS (2)
  1. EVEROLIMUS [Suspect]
     Indication: HEPATIC CANCER
     Dosage: 2.5 MG, UNK
     Route: 048
     Dates: start: 20120119, end: 20120619
  2. SORAFENIB [Suspect]
     Indication: HEPATIC CANCER
     Dosage: 400 MG, UNK
     Dates: start: 20120119, end: 20120619

REACTIONS (3)
  - Malignant neoplasm progression [Fatal]
  - Hepatocellular carcinoma [Fatal]
  - Hepatic failure [Not Recovered/Not Resolved]
